FAERS Safety Report 26073099 (Version 1)
Quarter: 2025Q4

REPORT INFORMATION
  Report Type: Spontaneous
  Country: JP (occurrence: JP)
  Receive Date: 20251121
  Receipt Date: 20251121
  Transmission Date: 20260118
  Serious: Yes (Hospitalization, Other)
  Sender: PANACEA BIOTEC PHARMA LIMITED
  Company Number: JP-PBT-011058

PATIENT
  Sex: Female

DRUGS (7)
  1. TACROLIMUS [Suspect]
     Active Substance: TACROLIMUS
     Indication: Connective tissue disease-associated interstitial lung disease
     Route: 065
     Dates: start: 2016
  2. NINTEDANIB [Suspect]
     Active Substance: NINTEDANIB
     Indication: Connective tissue disease-associated interstitial lung disease
     Route: 065
     Dates: start: 202102
  3. PREDNISOLONE [Suspect]
     Active Substance: PREDNISOLONE
     Indication: Connective tissue disease-associated interstitial lung disease
     Route: 048
     Dates: start: 202102
  4. TOFACITINIB [Concomitant]
     Active Substance: TOFACITINIB
     Indication: Connective tissue disease-associated interstitial lung disease
     Route: 065
  5. METHYLPREDNISOLONE [Concomitant]
     Active Substance: METHYLPREDNISOLONE
     Indication: Connective tissue disease-associated interstitial lung disease
     Route: 065
  6. TACROLIMUS [Suspect]
     Active Substance: TACROLIMUS
     Indication: Connective tissue disease-associated interstitial lung disease
     Dosage: 1 MG OR 1.5 MG
     Route: 065
     Dates: start: 2021
  7. PREDNISOLONE [Suspect]
     Active Substance: PREDNISOLONE
     Indication: Connective tissue disease-associated interstitial lung disease
     Route: 048
     Dates: start: 202102

REACTIONS (4)
  - Product use in unapproved indication [Unknown]
  - Disease progression [Recovered/Resolved]
  - Drug ineffective [Unknown]
  - Connective tissue disease-associated interstitial lung disease [Recovered/Resolved]

NARRATIVE: CASE EVENT DATE: 20170101
